FAERS Safety Report 20120289 (Version 2)
Quarter: 2021Q4

REPORT INFORMATION
  Report Type: Report from Study
  Country: KR (occurrence: None)
  Receive Date: 20211126
  Receipt Date: 20211130
  Transmission Date: 20220303
  Serious: Yes (Death, Hospitalization)
  Sender: FDA-Public Use
  Company Number: KR-Eisai Medical Research-EC-2021-103944

PATIENT
  Age: 58 Year
  Sex: Male

DRUGS (5)
  1. LENVIMA [Suspect]
     Active Substance: LENVATINIB
     Indication: Hepatocellular carcinoma
     Route: 048
     Dates: start: 20210629, end: 20210726
  2. HEPACID GRAN [Concomitant]
     Indication: Prophylaxis
     Dosage: 2PKG
     Route: 048
     Dates: start: 20201015, end: 20210824
  3. URSODIOL [Concomitant]
     Active Substance: URSODIOL
     Indication: Prophylaxis
     Dosage: 3 TABS
     Route: 048
     Dates: start: 20201015, end: 20210817
  4. NORZYME [Concomitant]
     Indication: Prophylaxis
     Dosage: 3 CAPS
     Route: 048
     Dates: start: 20201015, end: 20210805
  5. DIETARY SUPPLEMENT\HERBALS\MILK THISTLE [Concomitant]
     Active Substance: DIETARY SUPPLEMENT\HERBALS\MILK THISTLE
     Indication: Prophylaxis
     Dosage: 2 CAPS
     Route: 048
     Dates: start: 20201015, end: 20210817

REACTIONS (1)
  - Pneumocystis jirovecii pneumonia [Fatal]

NARRATIVE: CASE EVENT DATE: 20210726
